FAERS Safety Report 4688382-7 (Version None)
Quarter: 2005Q2

REPORT INFORMATION
  Report Type: 
  Country: None (occurrence: None)
  Receive Date: 20050609
  Receipt Date: 20050601
  Transmission Date: 20051028
  Serious: Yes (Death)
  Sender: FDA-Public Use
  Company Number: RS005238-J

PATIENT
  Age: 95 Year
  Sex: Female
  Weight: 30 kg

DRUGS (7)
  1. RABEPRAZOLE SODIUM [Suspect]
     Indication: REFLUX OESOPHAGITIS
     Dosage: 10 MG, 1 IN 1 D, ORAL
     Route: 048
  2. ALLOPURINOL [Suspect]
     Dosage: 200 MG, 1 IN 1 D, ORAL
     Route: 048
  3. ALDACTONE [Concomitant]
  4. LASIX [Concomitant]
  5. PURSENNID (SENNA LEAF) [Concomitant]
  6. THYRADIN (THYROID) [Concomitant]
  7. ISOSORBIDE MONONITRATE [Concomitant]

REACTIONS (2)
  - GRANULOCYTOPENIA [None]
  - LEUKOPENIA [None]
